FAERS Safety Report 18702185 (Version 1)
Quarter: 2021Q1

REPORT INFORMATION
  Report Type: Report from Study
  Country: None (occurrence: US)
  Receive Date: 20210105
  Receipt Date: 20210105
  Transmission Date: 20210419
  Serious: Yes (Other)
  Sender: FDA-Public Use
  Company Number: US-ABBVIE-21K-163-3716086-00

PATIENT
  Sex: Female

DRUGS (2)
  1. HUMIRA [Suspect]
     Active Substance: ADALIMUMAB
     Dosage: CITRATE FREE
     Route: 058
     Dates: start: 202011
  2. HUMIRA [Suspect]
     Active Substance: ADALIMUMAB
     Indication: PRODUCT USED FOR UNKNOWN INDICATION
     Dosage: CITRATE FREE
     Route: 058

REACTIONS (5)
  - Arthralgia [Unknown]
  - Lower limb fracture [Unknown]
  - Joint stiffness [Not Recovered/Not Resolved]
  - Pain [Not Recovered/Not Resolved]
  - Cyst [Unknown]

NARRATIVE: CASE EVENT DATE: 2020
